FAERS Safety Report 9986241 (Version 1)
Quarter: 2014Q1

REPORT INFORMATION
  Report Type: Spontaneous
  Country: US (occurrence: US)
  Receive Date: 20140307
  Receipt Date: 20140307
  Transmission Date: 20141002
  Serious: No
  Sender: FDA-Public Use
  Company Number: US-ABBVIE-13P-163-1089994-00

PATIENT
  Age: 69 Year
  Sex: Female
  Weight: 82.63 kg

DRUGS (11)
  1. HUMIRA [Suspect]
     Indication: RHEUMATOID ARTHRITIS
     Dates: start: 2004, end: 2012
  2. METOPROLOL [Concomitant]
     Indication: CORONARY ARTERY DISEASE
  3. AMLODIPINE [Concomitant]
     Indication: BLOOD PRESSURE
  4. OMEPRAZOLE [Concomitant]
     Indication: GASTROOESOPHAGEAL REFLUX DISEASE
  5. ASPIRIN [Concomitant]
     Indication: ANTICOAGULANT THERAPY
  6. HYDROCODONE [Concomitant]
     Indication: PAIN
  7. GABAPENTIN [Concomitant]
     Indication: OSTEITIS
  8. COMBIVENT [Concomitant]
     Indication: DYSPNOEA
  9. FLUTICASONE FUROATE [Concomitant]
     Indication: HYPERSENSITIVITY
     Route: 045
  10. SIMVASTATIN [Concomitant]
     Indication: BLOOD CHOLESTEROL
  11. BONIVA [Concomitant]
     Indication: OSTEOARTHRITIS

REACTIONS (3)
  - Rheumatoid arthritis [Not Recovered/Not Resolved]
  - Sinusitis [Not Recovered/Not Resolved]
  - Pneumonia [Not Recovered/Not Resolved]
